FAERS Safety Report 8173016-X (Version None)
Quarter: 2012Q1

REPORT INFORMATION
  Report Type: 
  Country: None (occurrence: None)
  Receive Date: 20120229
  Receipt Date: 20120220
  Transmission Date: 20120608
  Serious: Yes (Hospitalization)
  Sender: FDA-Public Use
  Company Number: US-BAYER-2011-047149

PATIENT
  Age: 35 Year
  Sex: Female
  Weight: 63.039 kg

DRUGS (7)
  1. VALTREX [Concomitant]
     Dosage: 1 G, BID
     Route: 048
  2. AMOXICILLIN [Concomitant]
     Dosage: 500 MG, TID
     Route: 048
  3. YASMIN [Suspect]
     Indication: ACNE
     Dosage: UNK
     Dates: start: 20060901, end: 20070801
  4. SEASONIQUE [Concomitant]
     Dosage: UNK UNK, QD
     Route: 048
  5. YAZ [Suspect]
     Indication: CONTRACEPTION
     Dosage: UNK
     Route: 048
     Dates: start: 20070801, end: 20080201
  6. YAZ [Suspect]
     Indication: ACNE
  7. YASMIN [Suspect]
     Indication: CONTRACEPTION
     Dosage: UNK
     Route: 048
     Dates: start: 20010901, end: 20050701

REACTIONS (7)
  - PAIN [None]
  - PSYCHOLOGICAL TRAUMA [None]
  - GALLBLADDER DISORDER [None]
  - ANXIETY [None]
  - CHOLECYSTITIS [None]
  - ABDOMINAL PAIN UPPER [None]
  - EMOTIONAL DISTRESS [None]
